FAERS Safety Report 17786329 (Version 1)
Quarter: 2020Q2

REPORT INFORMATION
  Report Type: Spontaneous
  Country: US (occurrence: US)
  Receive Date: 20200514
  Receipt Date: 20200514
  Transmission Date: 20200714
  Serious: Yes (Other)
  Sender: FDA-Public Use
  Company Number: US-TEVA-2020-US-1233474

PATIENT
  Sex: Male

DRUGS (1)
  1. OXYCODONE [Suspect]
     Active Substance: OXYCODONE
     Indication: SPINAL OSTEOARTHRITIS
     Dosage: 210 MILLIGRAM DAILY;
     Route: 065

REACTIONS (3)
  - Intentional product misuse [Unknown]
  - Partner stress [Unknown]
  - Drug dependence [Unknown]

NARRATIVE: CASE EVENT DATE: 2017
